FAERS Safety Report 26202272 (Version 1)
Quarter: 2025Q4

REPORT INFORMATION
  Report Type: Report from Study
  Country: PR (occurrence: PR)
  Receive Date: 20251226
  Receipt Date: 20251226
  Transmission Date: 20260118
  Serious: Yes (Hospitalization, Other)
  Sender: MALLINCKRODT
  Company Number: PR-MALLINCKRODT-MNK202508043

PATIENT
  Sex: Female

DRUGS (1)
  1. CORTICOTROPIN [Suspect]
     Active Substance: CORTICOTROPIN
     Indication: Systemic lupus erythematosus
     Dosage: 40 UNITS
     Route: 058
     Dates: start: 20251107

REACTIONS (6)
  - Subcutaneous haematoma [Unknown]
  - Fall [Unknown]
  - Diverticulitis [Not Recovered/Not Resolved]
  - Memory impairment [Unknown]
  - Skin discolouration [Unknown]
  - Fatigue [Unknown]
